FAERS Safety Report 15133928 (Version 2)
Quarter: 2018Q3

REPORT INFORMATION
  Report Type: Spontaneous
  Country: US (occurrence: US)
  Receive Date: 20180712
  Receipt Date: 20180717
  Transmission Date: 20181010
  Serious: Yes (Hospitalization)
  Sender: FDA-Public Use
  Company Number: US-HORIZON-ACT-0218-2018

PATIENT
  Age: 37 Year
  Sex: Male

DRUGS (5)
  1. ACTIMMUNE [Suspect]
     Active Substance: INTERFERON GAMMA-1B
     Indication: NEUTROPHIL FUNCTION DISORDER
     Dosage: 100 ?G THREE TIMES WEEKLY
     Route: 058
     Dates: start: 2018
  2. BACTRIM [Concomitant]
     Active Substance: SULFAMETHOXAZOLE\TRIMETHOPRIM
  3. LYRICA [Concomitant]
     Active Substance: PREGABALIN
  4. PREDNISONE. [Concomitant]
     Active Substance: PREDNISONE
  5. METHYLPREDNISOLONE. [Concomitant]
     Active Substance: METHYLPREDNISOLONE

REACTIONS (1)
  - Cerebrovascular accident [Recovered/Resolved]

NARRATIVE: CASE EVENT DATE: 20180704
